FAERS Safety Report 7408176-9 (Version None)
Quarter: 2011Q2

REPORT INFORMATION
  Report Type: 
  Country: None (occurrence: None)
  Receive Date: 20110412
  Receipt Date: 20101014
  Transmission Date: 20111010
  Serious: Yes (Hospitalization)
  Sender: FDA-Public Use
  Company Number: US-BAYER-201010037NA

PATIENT
  Age: 18 Year
  Sex: Female
  Weight: 74.83 kg

DRUGS (3)
  1. TYLENOL W/ CODEINE NO. 3 [Concomitant]
     Indication: CHEST PAIN
     Dosage: 2 PILLS, PRN
  2. YASMIN [Suspect]
     Indication: PRODUCT USED FOR UNKNOWN INDICATION
     Dosage: UNK UNK, QD
     Route: 048
     Dates: start: 20060101, end: 20080615
  3. YAZ [Suspect]
     Indication: PRODUCT USED FOR UNKNOWN INDICATION
     Dosage: UNK UNK, QD
     Route: 048
     Dates: start: 20060101, end: 20080615

REACTIONS (2)
  - THROMBOSIS [None]
  - PULMONARY EMBOLISM [None]
